FAERS Safety Report 5117517-7 (Version None)
Quarter: 2006Q3

REPORT INFORMATION
  Report Type: 
  Country: None (occurrence: None)
  Receive Date: 20060926
  Receipt Date: 20060907
  Transmission Date: 20061208
  Serious: Yes (Other)
  Sender: FDA-Public Use
  Company Number: US200609001949

PATIENT
  Sex: Male

DRUGS (1)
  1. HUMAN INSULIN (RDNA ORIGIN)(HUMAN INSULIN (RDNA ORIGIN) UNKNOWN FORMUL [Suspect]
     Indication: DIABETES MELLITUS
     Dosage: UNK, UNK, UNK

REACTIONS (3)
  - BLOOD GLUCOSE DECREASED [None]
  - BRAIN DAMAGE [None]
  - ROAD TRAFFIC ACCIDENT [None]
